FAERS Safety Report 4712290-6 (Version None)
Quarter: 2005Q3

REPORT INFORMATION
  Report Type: 
  Country: None (occurrence: None)
  Receive Date: 20050712
  Receipt Date: 20050620
  Transmission Date: 20060218
  Serious: Yes (Hospitalization)
  Sender: FDA-Public Use
  Company Number: US-BRISTOL-MYERS SQUIBB COMPANY-13010178

PATIENT
  Age: 58 Year
  Sex: Male
  Weight: 72 kg

DRUGS (13)
  1. CETUXIMAB [Suspect]
     Indication: SQUAMOUS CELL CARCINOMA
     Route: 042
     Dates: start: 20050613, end: 20050613
  2. CARBOPLATIN [Suspect]
     Indication: SQUAMOUS CELL CARCINOMA
     Route: 042
     Dates: start: 20050613, end: 20050613
  3. PACLITAXEL [Suspect]
     Indication: SQUAMOUS CELL CARCINOMA
     Route: 042
     Dates: start: 20050613, end: 20050613
  4. RADIATION THERAPY [Suspect]
     Indication: SQUAMOUS CELL CARCINOMA
     Dates: start: 20050617, end: 20050617
  5. DECADRON [Concomitant]
  6. BENADRYL [Concomitant]
  7. ANZEMET [Concomitant]
  8. ZOSYN [Concomitant]
  9. GATIFLOXACIN [Concomitant]
  10. MAGNESIUM OXIDE [Concomitant]
     Route: 048
  11. POTASSIUM CHLORIDE [Concomitant]
  12. MAGNESIUM [Concomitant]
     Route: 042
  13. OXYCODONE HCL [Concomitant]

REACTIONS (3)
  - HYPOMAGNESAEMIA [None]
  - PYREXIA [None]
  - RASH [None]
